FAERS Safety Report 11371049 (Version 1)
Quarter: 2015Q3

REPORT INFORMATION
  Report Type: Spontaneous
  Country: US (occurrence: US)
  Receive Date: 20150812
  Receipt Date: 20150812
  Transmission Date: 20151125
  Serious: Yes (Other)
  Sender: FDA-Public Use
  Company Number: US-GLAXOSMITHKLINE-US2015GSK115492

PATIENT
  Age: 65 Year
  Sex: Female

DRUGS (1)
  1. ADVAIR DISKUS [Suspect]
     Active Substance: FLUTICASONE PROPIONATE\SALMETEROL XINAFOATE
     Indication: CHRONIC OBSTRUCTIVE PULMONARY DISEASE
     Dosage: UNK, U
     Route: 065
     Dates: start: 2003

REACTIONS (5)
  - Myocardial infarction [Recovered/Resolved]
  - Stent placement [Recovered/Resolved]
  - Cardiac failure congestive [Not Recovered/Not Resolved]
  - Aneurysm [Unknown]
  - Device therapy [Unknown]

NARRATIVE: CASE EVENT DATE: 200304
